FAERS Safety Report 6452671-6 (Version None)
Quarter: 2009Q4

REPORT INFORMATION
  Report Type: 
  Country: None (occurrence: None)
  Receive Date: 20091124
  Receipt Date: 20091119
  Transmission Date: 20100525
  Serious: Yes (Other)
  Sender: FDA-Public Use
  Company Number: US-ELI_LILLY_AND_COMPANY-US200911005317

PATIENT
  Age: 66 Year
  Sex: Female

DRUGS (1)
  1. HUMULIN N [Suspect]

REACTIONS (3)
  - BLINDNESS [None]
  - INTERVERTEBRAL DISC DEGENERATION [None]
  - PAIN [None]
